FAERS Safety Report 10056356 (Version 1)
Quarter: 2014Q2

REPORT INFORMATION
  Report Type: Spontaneous
  Country: JP (occurrence: JP)
  Receive Date: 20140403
  Receipt Date: 20140403
  Transmission Date: 20141212
  Serious: Yes (Other)
  Sender: FDA-Public Use
  Company Number: JP-EISAI INC-E2090-03201-SPO-JP

PATIENT
  Age: 10 Month
  Sex: Male

DRUGS (5)
  1. EXCEGRAN [Suspect]
     Indication: TONIC CONVULSION
     Dosage: UNKNOWN
     Route: 048
  2. LAMICTAL [Suspect]
     Indication: PRODUCT USED FOR UNKNOWN INDICATION
     Dosage: UNKNOWN
     Route: 048
  3. SODIUM VALPROATE [Concomitant]
     Indication: TONIC CONVULSION
     Dosage: UNKNOWN
     Route: 048
  4. VIGABATRIN [Concomitant]
     Indication: INFANTILE SPASMS
     Dosage: 30 MG/KG/DAY
  5. VIGABATRIN [Concomitant]
     Dosage: 90 MG/KG/DAY

REACTIONS (1)
  - Drug eruption [Unknown]
